FAERS Safety Report 7321814-4 (Version None)
Quarter: 2011Q1

REPORT INFORMATION
  Report Type: 
  Country: None (occurrence: None)
  Receive Date: 20110228
  Receipt Date: 20110218
  Transmission Date: 20110831
  Serious: Yes (Hospitalization)
  Sender: FDA-Public Use
  Company Number: US-ASTRAZENECA-2011SE09557

PATIENT
  Age: 599 Month
  Sex: Female
  Weight: 99.8 kg

DRUGS (2)
  1. SEROQUEL [Suspect]
     Indication: BIPOLAR DISORDER
     Route: 048
  2. TRAZODONE HCL [Concomitant]

REACTIONS (2)
  - DRUG DOSE OMISSION [None]
  - BLOOD GLUCOSE INCREASED [None]
